FAERS Safety Report 5095853-0 (Version None)
Quarter: 2006Q3

REPORT INFORMATION
  Report Type: 
  Country: None (occurrence: None)
  Receive Date: 20060905
  Receipt Date: 20060801
  Transmission Date: 20061208
  Serious: Yes (Hospitalization)
  Sender: FDA-Public Use
  Company Number: BE-BAYER-200613305GDS

PATIENT
  Age: 31 Year
  Sex: Female

DRUGS (1)
  1. ASPIRIN [Suspect]
     Indication: LOCALISED INFECTION
     Route: 065

REACTIONS (2)
  - HYPERTHERMIA [None]
  - SEPSIS [None]
